FAERS Safety Report 4726219-8 (Version None)
Quarter: 2005Q3

REPORT INFORMATION
  Report Type: 
  Country: None (occurrence: None)
  Receive Date: 20050725
  Receipt Date: 20050715
  Transmission Date: 20060218
  Serious: Yes (Other)
  Sender: FDA-Public Use
  Company Number: 200510056BCA

PATIENT
  Age: 41 Year
  Sex: Female

DRUGS (9)
  1. AVELOX [Suspect]
     Dosage: 400 MG, TOTAL DAILY, INTRAVENOUS
     Route: 042
     Dates: start: 20050205
  2. VENTO [Concomitant]
  3. ATROVENT [Concomitant]
  4. MAXERAN [Concomitant]
  5. TYLENOL (CAPLET) [Concomitant]
  6. FLOVENT [Concomitant]
  7. ERYTHROMYCIN [Concomitant]
  8. GRAVOL TAB [Concomitant]
  9. PANTALOC [Concomitant]

REACTIONS (1)
  - SINUS BRADYCARDIA [None]
